FAERS Safety Report 10809620 (Version 1)
Quarter: 2015Q1

REPORT INFORMATION
  Report Type: Spontaneous
  Country: US (occurrence: None)
  Receive Date: 20150212
  Receipt Date: 20150212
  Transmission Date: 20150721
  Serious: Yes (Hospitalization)
  Sender: FDA-Public Use
  Company Number: None

PATIENT
  Age: 58 Year
  Sex: Male
  Weight: 71.9 kg

DRUGS (12)
  1. VELCADE [Suspect]
     Active Substance: BORTEZOMIB
     Indication: PLASMA CELL MYELOMA
     Dosage: 1.3 MG/M2 DAYS 1, 4, 8, 11 INTRAVENOUS
     Route: 042
     Dates: start: 20150105, end: 20150109
  2. OXYCODONE [Concomitant]
     Active Substance: OXYCODONE
  3. DEXAMETHASONE. [Concomitant]
     Active Substance: DEXAMETHASONE
  4. REMERON [Concomitant]
     Active Substance: MIRTAZAPINE
  5. LENALIDOMIDE 5 MG [Suspect]
     Active Substance: LENALIDOMIDE
     Indication: PLASMA CELL MYELOMA
     Dosage: 20 MG DAY 1-14 ORAL
     Route: 048
     Dates: start: 20150105, end: 20150110
  6. ATORVASTATIN [Concomitant]
     Active Substance: ATORVASTATIN
  7. DIPHENHYDRAMINE [Concomitant]
     Active Substance: DIPHENHYDRAMINE
  8. ACYCLOVIR. [Concomitant]
     Active Substance: ACYCLOVIR
  9. PROCHLORPERAZINE. [Concomitant]
     Active Substance: PROCHLORPERAZINE
  10. OMEPRAZOLE. [Concomitant]
     Active Substance: OMEPRAZOLE
  11. LORAZEPAM. [Concomitant]
     Active Substance: LORAZEPAM
  12. ENOXAPARIN [Concomitant]
     Active Substance: ENOXAPARIN

REACTIONS (4)
  - Productive cough [None]
  - Empyema [None]
  - Pyrexia [None]
  - Pleural effusion [None]

NARRATIVE: CASE EVENT DATE: 20150209
